FAERS Safety Report 8297782-8 (Version None)
Quarter: 2012Q1

REPORT INFORMATION
  Report Type: 
  Country: None (occurrence: None)
  Receive Date: 20120323
  Receipt Date: 20101224
  Transmission Date: 20120608
  Serious: Yes (Other)
  Sender: FDA-Public Use
  Company Number: PHHY2010US72799

PATIENT
  Age: 22 Year
  Sex: Female

DRUGS (7)
  1. TOBI [Suspect]
     Indication: CYSTIC FIBROSIS
     Dosage: 300 MG, BID, 28 DAYS ON/OFF, INHALATION
     Route: 055
  2. ADEK (VITAMINS NOS) [Concomitant]
  3. CREON (AMYLASE, LIPASE, PANCREATIN, PROTEASE) [Concomitant]
  4. AZITHROMYCIN [Concomitant]
  5. ZYRTEC [Concomitant]
  6. ADDERALL (AMFETAMINE ASPARTATE, AMFETAMINE SULFATE, DEXAMFETAMINE SACC [Concomitant]
  7. PULMOZYME [Concomitant]

REACTIONS (5)
  - INFECTIVE PULMONARY EXACERBATION OF CYSTIC FIBROSIS [None]
  - DYSPNOEA [None]
  - OXYGEN SATURATION DECREASED [None]
  - ANXIETY [None]
  - BLOOD TEST ABNORMAL [None]
